FAERS Safety Report 14330411 (Version 2)
Quarter: 2018Q1

REPORT INFORMATION
  Report Type: Other
  Country: FR (occurrence: FR)
  Receive Date: 20171227
  Receipt Date: 20180226
  Transmission Date: 20180509
  Serious: Yes (Hospitalization, Other)
  Sender: FDA-Public Use
  Company Number: FR-RARE DISEASE THERAPEUTICS, INC.-2037836

PATIENT
  Age: 4 Year
  Sex: Female

DRUGS (18)
  1. DOLIPRANE [Concomitant]
     Active Substance: ACETAMINOPHEN
  2. DEXAMETHASONE. [Suspect]
     Active Substance: DEXAMETHASONE
     Route: 048
     Dates: start: 20170921, end: 20170925
  3. METHOTREXATE. [Suspect]
     Active Substance: METHOTREXATE
     Dates: start: 20170728, end: 20170922
  4. METHOTREXATE. [Suspect]
     Active Substance: METHOTREXATE
     Route: 048
     Dates: start: 20170203, end: 20170914
  5. PURIXAN [Suspect]
     Active Substance: MERCAPTOPURINE
     Route: 048
     Dates: start: 20170727, end: 20170816
  6. CEFTAZIDIME. [Concomitant]
     Active Substance: CEFTAZIDIME
  7. VANCOMYCIN [Concomitant]
     Active Substance: VANCOMYCIN
  8. BACTRIM [Concomitant]
     Active Substance: SULFAMETHOXAZOLE\TRIMETHOPRIM
  9. VINCRISTINE SULFATE. [Suspect]
     Active Substance: VINCRISTINE SULFATE
     Dates: start: 20170727, end: 20170921
  10. VINCRISTINE SULFATE. [Suspect]
     Active Substance: VINCRISTINE SULFATE
     Dates: start: 20170803, end: 20170928
  11. ADRIGYL [Concomitant]
  12. INEXIUM [Concomitant]
     Active Substance: ESOMEPRAZOLE
  13. PURIXAN [Suspect]
     Active Substance: MERCAPTOPURINE
     Indication: ACUTE LYMPHOCYTIC LEUKAEMIA
     Route: 048
     Dates: start: 20170824, end: 20170913
  14. DEXAMETHASONE. [Suspect]
     Active Substance: DEXAMETHASONE
     Dates: start: 20170727, end: 20170926
  15. DEXAMETHASONE. [Suspect]
     Active Substance: DEXAMETHASONE
     Dates: start: 20170824, end: 20170828
  16. DECTANCYL [Concomitant]
     Active Substance: DEXAMETHASONE
  17. FUNGIZONE [Concomitant]
     Active Substance: AMPHOTERICIN B
  18. PEGASPARGASE [Suspect]
     Active Substance: PEGASPARGASE
     Dates: start: 20170803, end: 20170928

REACTIONS (3)
  - Febrile bone marrow aplasia [Recovered/Resolved]
  - Hyperbilirubinaemia [Recovered/Resolved]
  - Staphylococcus test positive [Recovered/Resolved]

NARRATIVE: CASE EVENT DATE: 20170921
